FAERS Safety Report 10735232 (Version 2)
Quarter: 2015Q1

REPORT INFORMATION
  Report Type: Spontaneous
  Country: US (occurrence: US)
  Receive Date: 20150125
  Receipt Date: 20150211
  Transmission Date: 20150721
  Serious: Yes (Other)
  Sender: FDA-Public Use
  Company Number: US-TEVA-536030USA

PATIENT
  Sex: Female

DRUGS (1)
  1. COPAXONE [Suspect]
     Active Substance: GLATIRAMER ACETATE
     Indication: MULTIPLE SCLEROSIS
     Dates: start: 2005

REACTIONS (8)
  - Fall [Unknown]
  - Multiple sclerosis relapse [Unknown]
  - Hypoaesthesia [Unknown]
  - Wrist fracture [Unknown]
  - Loss of consciousness [Unknown]
  - Fatigue [Unknown]
  - Visual impairment [Unknown]
  - Back injury [Unknown]

NARRATIVE: CASE EVENT DATE: 2012
